FAERS Safety Report 17540868 (Version 1)
Quarter: 2020Q1

REPORT INFORMATION
  Report Type: Spontaneous
  Country: US (occurrence: US)
  Receive Date: 20200313
  Receipt Date: 20200313
  Transmission Date: 20200409
  Serious: No
  Sender: FDA-Public Use
  Company Number: US-TARO-2020TAR00084

PATIENT

DRUGS (2)
  1. LAMOTRIGINE TABLETS 100 MG [Suspect]
     Active Substance: LAMOTRIGINE
     Indication: BIPOLAR DISORDER
     Dosage: 100 MG, BID (LONG TIME)
     Route: 048
  2. LAMOTRIGINE TABLETS 100 MG [Suspect]
     Active Substance: LAMOTRIGINE
     Indication: EPILEPSY

REACTIONS (9)
  - Asthenia [Unknown]
  - Tremor [Unknown]
  - Depression [Unknown]
  - Antipsychotic drug level increased [Unknown]
  - Abdominal discomfort [Unknown]
  - Emotional disorder [Unknown]
  - Diarrhoea [Unknown]
  - Malaise [Unknown]
  - Mania [Unknown]
